FAERS Safety Report 4848181-X (Version None)
Quarter: 2005Q4

REPORT INFORMATION
  Report Type: 
  Country: None (occurrence: None)
  Receive Date: 20051116
  Receipt Date: 20050901
  Transmission Date: 20060501
  Serious: Yes (Other)
  Sender: FDA-Public Use
  Company Number: PHEH2005US09844

PATIENT
  Age: 22 Year
  Sex: Female

DRUGS (1)
  1. GLEEVEC [Suspect]
     Indication: CHRONIC MYELOID LEUKAEMIA
     Dosage: MG, QD, ORAL
     Route: 048
     Dates: start: 20030101

REACTIONS (3)
  - DIZZINESS EXERTIONAL [None]
  - PALPITATIONS [None]
  - TACHYCARDIA [None]
